FAERS Safety Report 9057265 (Version 1)
Quarter: 2013Q1

REPORT INFORMATION
  Report Type: Report from Study
  Country: JP (occurrence: JP)
  Receive Date: 20130131
  Receipt Date: 20130131
  Transmission Date: 20140127
  Serious: Yes (Other)
  Sender: FDA-Public Use
  Company Number: JP-GLAXOSMITHKLINE-B0860291A

PATIENT
  Age: 76 None
  Sex: Female
  Weight: 37 kg

DRUGS (8)
  1. TYKERB [Suspect]
     Indication: BREAST CANCER
     Route: 048
     Dates: start: 20090806, end: 20090819
  2. TYKERB [Suspect]
     Indication: BREAST CANCER
     Route: 048
     Dates: start: 20090903, end: 20091014
  3. TYKERB [Suspect]
     Indication: BREAST CANCER
     Route: 048
     Dates: start: 20091126, end: 20100407
  4. TYKERB [Suspect]
     Indication: BREAST CANCER
     Route: 048
     Dates: start: 20100422, end: 20100623
  5. XELODA [Suspect]
     Route: 048
     Dates: start: 20090806, end: 20090819
  6. XELODA [Suspect]
     Route: 048
     Dates: start: 20090903, end: 20091007
  7. XELODA [Suspect]
     Route: 048
     Dates: start: 20100311, end: 20100407
  8. XELODA [Suspect]
     Route: 048
     Dates: start: 20100422, end: 20100616

REACTIONS (5)
  - Cellulitis [Recovered/Resolved]
  - Stomatitis [Unknown]
  - Palmar-plantar erythrodysaesthesia syndrome [Unknown]
  - Diarrhoea [Recovering/Resolving]
  - Anaemia [Recovered/Resolved]
